FAERS Safety Report 9551552 (Version 1)
Quarter: 2013Q3

REPORT INFORMATION
  Report Type: Spontaneous
  Country: US (occurrence: None)
  Receive Date: 20130724
  Receipt Date: 20130724
  Transmission Date: 20140515
  Serious: Yes (Other)
  Sender: FDA-Public Use
  Company Number: PHEH2013US005461

PATIENT
  Age: 74 Year
  Sex: Male

DRUGS (2)
  1. GLEEVEC (IMATINIB) [Suspect]
     Indication: CHRONIC MYELOID LEUKAEMIA
     Route: 048
     Dates: start: 20110408
  2. SPRYCEL (DASATINIB MONOHYDRATE) [Concomitant]

REACTIONS (2)
  - Chronic myeloid leukaemia [None]
  - Malignant neoplasm progression [None]
